FAERS Safety Report 8381940-8 (Version None)
Quarter: 2012Q2

REPORT INFORMATION
  Report Type: 
  Country: None (occurrence: None)
  Receive Date: 20120522
  Receipt Date: 20120522
  Transmission Date: 20120825
  Serious: Yes (Other)
  Sender: FDA-Public Use
  Company Number: None

PATIENT
  Age: 29 Year
  Sex: Female
  Weight: 49.8957 kg

DRUGS (2)
  1. VENLAFAXINE [Suspect]
     Indication: SLEEP DISORDER
     Dosage: 37.5 MG ONCE PER DAY PO
     Route: 048
     Dates: start: 20120517, end: 20120517
  2. VENLAFAXINE [Suspect]
     Indication: CATAPLEXY
     Dosage: 37.5 MG ONCE PER DAY PO
     Route: 048
     Dates: start: 20120517, end: 20120517

REACTIONS (8)
  - MUSCULAR WEAKNESS [None]
  - FEELING JITTERY [None]
  - NAUSEA [None]
  - DECREASED APPETITE [None]
  - BALANCE DISORDER [None]
  - OROPHARYNGEAL PAIN [None]
  - DYSPHONIA [None]
  - DIZZINESS [None]
